FAERS Safety Report 9645962 (Version 1)
Quarter: 2013Q4

REPORT INFORMATION
  Report Type: Spontaneous
  Country: US (occurrence: None)
  Receive Date: 20131024
  Receipt Date: 20131024
  Transmission Date: 20140711
  Serious: Yes (Hospitalization, Other)
  Sender: FDA-Public Use
  Company Number: None

PATIENT
  Age: 90 Year
  Sex: Female
  Weight: 63.5 kg

DRUGS (1)
  1. ALDARA [Suspect]
     Indication: ACNE
     Route: 061
     Dates: start: 201205, end: 201206

REACTIONS (5)
  - Asthenia [None]
  - Decreased appetite [None]
  - Weight decreased [None]
  - Application site reaction [None]
  - General physical health deterioration [None]
